FAERS Safety Report 10013433 (Version 1)
Quarter: 2014Q1

REPORT INFORMATION
  Report Type: Report from Study
  Country: US (occurrence: US)
  Receive Date: 20140314
  Receipt Date: 20140314
  Transmission Date: 20141002
  Serious: Yes (Other)
  Sender: FDA-Public Use
  Company Number: US-ABBVIE-14P-163-1210426-00

PATIENT
  Age: 33 Year
  Sex: Female
  Weight: 81.27 kg

DRUGS (5)
  1. HUMIRA [Suspect]
     Indication: CROHN^S DISEASE
     Dates: end: 201208
  2. HUMIRA [Suspect]
     Dates: start: 201402, end: 201402
  3. HUMIRA [Suspect]
     Dates: start: 201402, end: 201402
  4. HUMIRA [Suspect]
     Dates: start: 2014
  5. FIORICET [Concomitant]
     Indication: MIGRAINE

REACTIONS (5)
  - Cephalo-pelvic disproportion [Recovered/Resolved]
  - Abdominal pain [Recovering/Resolving]
  - Diarrhoea [Recovering/Resolving]
  - Haematochezia [Recovering/Resolving]
  - Crohn^s disease [Recovering/Resolving]
